FAERS Safety Report 11424734 (Version 1)
Quarter: 2015Q3

REPORT INFORMATION
  Report Type: Spontaneous
  Country: BR (occurrence: BR)
  Receive Date: 20150827
  Receipt Date: 20150827
  Transmission Date: 20151125
  Serious: Yes (Other)
  Sender: FDA-Public Use
  Company Number: BR-EISAI MEDICAL RESEARCH-EC-2015-009854

PATIENT
  Sex: Female

DRUGS (2)
  1. PARIET [Suspect]
     Active Substance: RABEPRAZOLE SODIUM
     Indication: GASTRIC ULCER
     Route: 048
     Dates: start: 2012
  2. CALCIUM MAGNESIUM + ZINC [Concomitant]
     Indication: OSTEOPENIA
     Dosage: UNKNOWN
     Route: 065

REACTIONS (5)
  - Pigmentation disorder [Not Recovered/Not Resolved]
  - Drug effect incomplete [Not Recovered/Not Resolved]
  - Arthropathy [Not Recovered/Not Resolved]
  - Drug dependence [Not Recovered/Not Resolved]
  - Rash [Not Recovered/Not Resolved]

NARRATIVE: CASE EVENT DATE: 2014
